FAERS Safety Report 4721368-2 (Version None)
Quarter: 2005Q3

REPORT INFORMATION
  Report Type: 
  Country: None (occurrence: None)
  Receive Date: 20050721
  Receipt Date: 20040723
  Transmission Date: 20060218
  Serious: No
  Sender: FDA-Public Use
  Company Number: US-BRISTOL-MYERS SQUIBB COMPANY-12649844

PATIENT
  Age: 83 Year
  Sex: Female
  Weight: 71 kg

DRUGS (11)
  1. COUMADIN [Suspect]
     Indication: CEREBROVASCULAR ACCIDENT PROPHYLAXIS
     Route: 048
  2. COUMADIN [Suspect]
     Indication: THROMBOSIS
     Route: 048
  3. CALAN [Concomitant]
  4. ZYRTEC [Concomitant]
  5. VITAMIN B6 [Concomitant]
  6. ALBEE + C [Concomitant]
  7. VITAMIN E [Concomitant]
  8. SYNTHROID [Concomitant]
  9. PRAVACHOL [Concomitant]
  10. LASIX [Concomitant]
  11. LANOXIN [Concomitant]

REACTIONS (1)
  - SKIN DISCOLOURATION [None]
